FAERS Safety Report 4700703-5 (Version None)
Quarter: 2005Q2

REPORT INFORMATION
  Report Type: 
  Country: None (occurrence: None)
  Receive Date: 20050627
  Receipt Date: 20050609
  Transmission Date: 20051028
  Serious: Yes (Death, Hospitalization)
  Sender: FDA-Public Use
  Company Number: DEU-2005-0001493

PATIENT
  Age: 83 Year
  Sex: Female

DRUGS (13)
  1. PALLADONE [Suspect]
     Indication: PAIN
     Dosage: 4 MG BID , ORAL
     Route: 048
  2. MARCUMAR [Suspect]
     Indication: THROMBOSIS PROPHYLAXIS
     Dosage: SEE TEXT, ORAL
     Route: 048
  3. HALOPERIDOL [Concomitant]
  4. ATORVASTATIN CALCIUM [Concomitant]
  5. DIGITOXIN TAB [Concomitant]
  6. BISOPROLOL FUMARATE [Concomitant]
  7. ESOMEPRAZOLE (ESOMEPRAZOLE) [Concomitant]
  8. TORSEMIDE [Concomitant]
  9. BETA BLOCKING AGENTS [Concomitant]
  10. PENTAERYTHIRITOL TETRANITRATE TAB [Concomitant]
  11. SIMVASTATIN [Concomitant]
  12. POTASSIUM (POTASSIUM) [Concomitant]
  13. PANTOPRAZOLE SODIUM [Concomitant]

REACTIONS (8)
  - ANTICOAGULATION DRUG LEVEL BELOW THERAPEUTIC [None]
  - CEREBRAL ARTERY EMBOLISM [None]
  - DRUG INTERACTION [None]
  - HEMIPLEGIA [None]
  - INTERNATIONAL NORMALISED RATIO DECREASED [None]
  - ISCHAEMIC CEREBRAL INFARCTION [None]
  - MEDICATION ERROR [None]
  - PROTHROMBIN TIME SHORTENED [None]
